FAERS Safety Report 23917116 (Version 1)
Quarter: 2024Q2

REPORT INFORMATION
  Report Type: Spontaneous
  Country: PT (occurrence: PT)
  Receive Date: 20240529
  Receipt Date: 20240529
  Transmission Date: 20240716
  Serious: Yes (Other)
  Sender: FDA-Public Use
  Company Number: PT-ALAT_HILIT-167

PATIENT
  Age: 77 Year
  Sex: Male

DRUGS (2)
  1. CARBIDOPA AND LEVODOPA [Suspect]
     Active Substance: CARBIDOPA\LEVODOPA
     Indication: Parkinson^s disease
     Dosage: 1 DOSAGE FORM, TID
     Route: 048
  2. RIVASTIGMINE [Suspect]
     Active Substance: RIVASTIGMINE
     Indication: Parkinson^s disease
     Dosage: 4.5 MILLIGRAM, QD
     Route: 065

REACTIONS (2)
  - Intestinal pseudo-obstruction [Unknown]
  - Constipation [Unknown]
